FAERS Safety Report 9231708 (Version 9)
Quarter: 2014Q3

REPORT INFORMATION
  Report Type: Report from Study
  Country: CH (occurrence: CH)
  Receive Date: 20130415
  Receipt Date: 20140804
  Transmission Date: 20150326
  Serious: Yes (Life-Threatening, Hospitalization, Other)
  Sender: FDA-Public Use
  Company Number: CH-BAYER-2013-044669

PATIENT
  Age: 78 Year
  Sex: Male
  Weight: 76 kg

DRUGS (12)
  1. REGORAFENIB [Suspect]
     Active Substance: REGORAFENIB
     Indication: COLORECTAL CANCER METASTATIC
     Dosage: 160 MG, QD (ONCE DAILY)
     Route: 048
     Dates: start: 20130309, end: 20130405
  2. REGORAFENIB [Suspect]
     Active Substance: REGORAFENIB
     Indication: COLORECTAL CANCER METASTATIC
     Dosage: 120 MG DAILY
     Route: 048
     Dates: start: 20130416, end: 20130419
  3. MAGNESIUM ASPARTATE [Concomitant]
     Active Substance: MAGNESIUM ASPARTATE
     Indication: HYPOMAGNESAEMIA
     Dosage: UNK
     Route: 048
     Dates: start: 2013
  4. FORTECORTIN [Concomitant]
     Active Substance: DEXAMETHASONE
     Indication: RASH
     Dosage: DAILY DOSE; 4MG
     Route: 048
     Dates: start: 201303
  5. FORTECORTIN [Concomitant]
     Active Substance: DEXAMETHASONE
     Indication: RASH
     Dosage: DAILY DOSE 3 MG
     Route: 048
     Dates: start: 201304, end: 20130405
  6. REMERON [Concomitant]
     Active Substance: MIRTAZAPINE
     Indication: PAIN
     Dosage: DAILY DOSE: 15MG
     Dates: start: 2012
  7. MAGNESIUM [Concomitant]
     Active Substance: MAGNESIUM
     Indication: MALNUTRITION
     Dosage: DAILY DOSE 1 DF
     Route: 048
     Dates: start: 2013
  8. PHOSPHO [Concomitant]
     Indication: MALNUTRITION
     Dosage: DAILY DOSE 3 DF
     Route: 048
     Dates: start: 201304
  9. ENLIVE [Concomitant]
     Indication: MALNUTRITION
     Dosage: DAILY DOSE 200 ML
     Route: 048
     Dates: start: 201304
  10. NEXIUM [Concomitant]
     Active Substance: ESOMEPRAZOLE MAGNESIUM
     Indication: PROPHYLAXIS
     Dosage: DAILY DOSE: 40MG
     Route: 048
     Dates: start: 2012
  11. MOTILIUM [Concomitant]
     Active Substance: DOMPERIDONE
     Indication: PROPHYLAXIS OF NAUSEA AND VOMITING
     Dosage: DAILY DOSE: 10MG
     Route: 048
     Dates: start: 2012
  12. CALCIMAGON-D 3 [Concomitant]
     Indication: MALNUTRITION
     Dosage: DAILY DOSE 1 DF
     Route: 048
     Dates: start: 201304

REACTIONS (2)
  - General physical health deterioration [Recovered/Resolved]
  - Pulmonary embolism [Recovering/Resolving]

NARRATIVE: CASE EVENT DATE: 20130405
